FAERS Safety Report 9558351 (Version 1)
Quarter: 2013Q3

REPORT INFORMATION
  Report Type: Spontaneous
  Country: US (occurrence: US)
  Receive Date: 20130926
  Receipt Date: 20130926
  Transmission Date: 20140515
  Serious: Yes (Hospitalization, Other)
  Sender: FDA-Public Use
  Company Number: US-TEVA-433756USA

PATIENT
  Sex: Female

DRUGS (2)
  1. BENZYLPENICILLIN [Suspect]
  2. CODEINE [Suspect]

REACTIONS (4)
  - Neoplasm malignant [Unknown]
  - Arthropathy [Unknown]
  - Drug hypersensitivity [Unknown]
  - Lactose intolerance [Unknown]
